FAERS Safety Report 4642013-0 (Version None)
Quarter: 2005Q2

REPORT INFORMATION
  Report Type: 
  Country: None (occurrence: None)
  Receive Date: 20050324
  Receipt Date: 20040713
  Transmission Date: 20051028
  Serious: No
  Sender: FDA-Public Use
  Company Number: K200401083

PATIENT
  Age: 53 Year
  Sex: Female

DRUGS (7)
  1. NORDETTE-28 [Suspect]
  2. MEDROXYPROGESTERONE ACETATE [Suspect]
     Indication: HORMONE REPLACEMENT THERAPY
  3. ACTIVELLA [Suspect]
  4. LOESTRIN (ETHINYLESTRADIOL, NORETHISTERONE ACETATE) [Suspect]
  5. PREMARIN [Suspect]
  6. PREMPHASE (ESTROGENS CONJUGATED, MEDROXYPROGESTERONE ACETATE) [Suspect]
  7. PROVERA [Suspect]

REACTIONS (1)
  - BREAST CANCER [None]
